FAERS Safety Report 19360125 (Version 1)
Quarter: 2021Q2

REPORT INFORMATION
  Report Type: Report from Study
  Country: None (occurrence: US)
  Receive Date: 20210602
  Receipt Date: 20210602
  Transmission Date: 20210717
  Serious: Yes (Hospitalization)
  Sender: FDA-Public Use
  Company Number: US-MDD US OPERATIONS-MDD202007-001518

PATIENT
  Age: 71 Year
  Sex: Female

DRUGS (17)
  1. HYDROCODONE?ACETAMINOPHEN [Concomitant]
     Active Substance: ACETAMINOPHEN\HYDROCODONE
     Dosage: NOT PROVIDED
  2. ASPIRIN. [Concomitant]
     Active Substance: ASPIRIN
     Dosage: NOT PROVIDED
  3. CARBIDOPA?LEVODOPA ER [Concomitant]
     Active Substance: CARBIDOPA\LEVODOPA
     Dosage: NOT PROVIDED
  4. MOVANTIK [Concomitant]
     Active Substance: NALOXEGOL OXALATE
     Dosage: NOT PROVIDED
  5. CARBIDOPA?LEVODOPA [Concomitant]
     Active Substance: CARBIDOPA\LEVODOPA
     Dosage: NOT PROVIDED
  6. COMBIVENT RESPIMAT [Concomitant]
     Active Substance: ALBUTEROL SULFATE\IPRATROPIUM BROMIDE
     Dosage: NOT PROVIDED
  7. LINZESS [Concomitant]
     Active Substance: LINACLOTIDE
     Dosage: NOT PROVIDED
  8. CLONAZEPAM. [Concomitant]
     Active Substance: CLONAZEPAM
     Dosage: NOT PROVIDED
  9. GABAPENTIN. [Concomitant]
     Active Substance: GABAPENTIN
     Dosage: NOT PROVIDED
  10. NUPLAZID [Concomitant]
     Active Substance: PIMAVANSERIN TARTRATE
  11. APOKYN [Suspect]
     Active Substance: APOMORPHINE HYDROCHLORIDE
     Indication: PARKINSON^S DISEASE
     Dosage: UP TO 0.2ML PER DOSE
     Route: 058
  12. MILK OF MAGNESIA [Concomitant]
     Active Substance: MAGNESIUM HYDROXIDE
     Dosage: NOT PROVIDED
  13. XADAGO [Concomitant]
     Active Substance: SAFINAMIDE MESYLATE
     Dosage: NOT PROVIDED
  14. ROPINIROLE ER [Concomitant]
     Active Substance: ROPINIROLE
     Dosage: NOT PROVIDED
  15. MIRALAX [Concomitant]
     Active Substance: POLYETHYLENE GLYCOL 3350
  16. PROMETHAZINE HYDROCHLORIDE. [Concomitant]
     Active Substance: PROMETHAZINE HYDROCHLORIDE
     Dosage: NOT PROVIDED
  17. FLUDROCORTISONE ACETATE. [Concomitant]
     Active Substance: FLUDROCORTISONE ACETATE
     Dosage: NOT PROVIDED

REACTIONS (3)
  - Dyskinesia [Unknown]
  - Injection site pain [Unknown]
  - Hallucination [Unknown]
